FAERS Safety Report 4495337-4 (Version None)
Quarter: 2004Q4

REPORT INFORMATION
  Report Type: 
  Country: None (occurrence: None)
  Receive Date: 20041103
  Receipt Date: 20041021
  Transmission Date: 20050328
  Serious: Yes (Hospitalization)
  Sender: FDA-Public Use
  Company Number: 205165

PATIENT
  Age: 40 Year
  Sex: Female
  Weight: 77.1115 kg

DRUGS (2)
  1. AVONEX [Suspect]
     Indication: MULTIPLE SCLEROSIS
     Dosage: 30 MCG QW IM
     Route: 030
     Dates: start: 19990208, end: 20031001
  2. AVONEX [Suspect]
     Indication: MULTIPLE SCLEROSIS
     Dosage: 30 MCG QW IM
     Route: 030
     Dates: start: 19990208, end: 20031001

REACTIONS (10)
  - BLOOD POTASSIUM DECREASED [None]
  - ERYTHEMA [None]
  - FEELING HOT [None]
  - INFECTION [None]
  - LIMB INJURY [None]
  - LOCALISED INFECTION [None]
  - PAIN [None]
  - SKIN DISORDER [None]
  - STAPHYLOCOCCAL INFECTION [None]
  - STREPTOCOCCAL INFECTION [None]
